FAERS Safety Report 7374805-1 (Version None)
Quarter: 2011Q1

REPORT INFORMATION
  Report Type: 
  Country: None (occurrence: None)
  Receive Date: 20110325
  Receipt Date: 20110117
  Transmission Date: 20110831
  Serious: No
  Sender: FDA-Public Use
  Company Number: US-MYLANLABS-2010S1022333

PATIENT
  Age: 44 Year
  Sex: Male

DRUGS (4)
  1. FENTANYL-100 [Suspect]
     Dosage: CHANGED Q48H
     Route: 062
     Dates: start: 20110101
  2. FENTANYL-100 [Suspect]
     Dosage: CHANGED Q48H
     Route: 062
     Dates: start: 20110101
  3. FENTANYL-100 [Suspect]
     Indication: BACK PAIN
     Dosage: CHANGED Q48H
     Route: 062
     Dates: start: 20100901, end: 20110101
  4. FENTANYL-100 [Suspect]
     Indication: NECK PAIN
     Dosage: CHANGED Q48H
     Route: 062
     Dates: start: 20100901, end: 20110101

REACTIONS (8)
  - NECK PAIN [None]
  - APPLICATION SITE ERYTHEMA [None]
  - DRUG INEFFECTIVE [None]
  - TREMOR [None]
  - APPLICATION SITE VESICLES [None]
  - INCORRECT DRUG ADMINISTRATION DURATION [None]
  - DRUG WITHDRAWAL SYNDROME [None]
  - BACK PAIN [None]
